FAERS Safety Report 6542589-2 (Version None)
Quarter: 2010Q1

REPORT INFORMATION
  Report Type: 
  Country: None (occurrence: None)
  Receive Date: 20100119
  Receipt Date: 20100112
  Transmission Date: 20100710
  Serious: Yes (Other)
  Sender: FDA-Public Use
  Company Number: GB-BAXTER-2009BH019686

PATIENT
  Age: 37 Year
  Sex: Male

DRUGS (5)
  1. DEXTROSE 5% [Suspect]
     Indication: RECTAL CANCER
     Route: 041
     Dates: start: 20091108, end: 20091108
  2. ELOXITAN [Suspect]
     Indication: RECTAL CANCER
     Route: 041
     Dates: start: 20091108, end: 20091108
  3. CAPECITABINE [Concomitant]
     Indication: DRUG USE FOR UNKNOWN INDICATION
     Route: 065
  4. DEXAMETHASONE [Concomitant]
     Indication: NAUSEA
     Route: 041
     Dates: start: 20091108, end: 20091108
  5. KYTRIL [Concomitant]
     Indication: NAUSEA
     Route: 041
     Dates: start: 20091108, end: 20091108

REACTIONS (1)
  - ANAPHYLACTIC REACTION [None]
